FAERS Safety Report 18788103 (Version 1)
Quarter: 2021Q1

REPORT INFORMATION
  Report Type: Spontaneous
  Country: US (occurrence: US)
  Receive Date: 20210126
  Receipt Date: 20210126
  Transmission Date: 20210419
  Serious: Yes (Disabling, Other)
  Sender: FDA-Public Use
  Company Number: None

PATIENT
  Age: 66 Year
  Sex: Female

DRUGS (2)
  1. DUPIXENT [Suspect]
     Active Substance: DUPILUMAB
     Indication: ECZEMA
     Dates: start: 20170501, end: 20200201
  2. DUPIXENT [Suspect]
     Active Substance: DUPILUMAB
     Indication: DERMATITIS ATOPIC
     Dates: start: 20170501, end: 20200201

REACTIONS (4)
  - Pain in extremity [None]
  - Walking disability [None]
  - Knee arthroplasty [None]
  - Hip arthroplasty [None]

NARRATIVE: CASE EVENT DATE: 20181101
